FAERS Safety Report 18734706 (Version 2)
Quarter: 2021Q1

REPORT INFORMATION
  Report Type: Spontaneous
  Country: IT (occurrence: IT)
  Receive Date: 20210113
  Receipt Date: 20210120
  Transmission Date: 20210419
  Serious: Yes (Hospitalization, Other)
  Sender: FDA-Public Use
  Company Number: IT-GLAXOSMITHKLINE-IT2021003686

PATIENT
  Age: 25 Year
  Sex: Female

DRUGS (1)
  1. LAMICTAL [Suspect]
     Active Substance: LAMOTRIGINE
     Indication: PRODUCT USED FOR UNKNOWN INDICATION
     Dosage: 1 G, SINGLE
     Route: 048
     Dates: start: 20200616, end: 20200616

REACTIONS (5)
  - Fall [Recovering/Resolving]
  - Bradyphrenia [Recovering/Resolving]
  - Ataxia [Recovering/Resolving]
  - Overdose [Unknown]
  - Rhabdomyolysis [Recovering/Resolving]

NARRATIVE: CASE EVENT DATE: 20200616
